FAERS Safety Report 15725944 (Version 3)
Quarter: 2019Q1

REPORT INFORMATION
  Report Type: Spontaneous
  Country: US (occurrence: US)
  Receive Date: 20181216
  Receipt Date: 20190307
  Transmission Date: 20190417
  Serious: Yes (Other)
  Sender: FDA-Public Use
  Company Number: PHEH2018US052789

PATIENT
  Age: 33 Year
  Sex: Male
  Weight: 84.35 kg

DRUGS (1)
  1. TASIGNA [Suspect]
     Active Substance: NILOTINIB
     Indication: CHRONIC MYELOID LEUKAEMIA
     Dosage: 400 MG, BID
     Route: 065
     Dates: start: 20110125, end: 20170627

REACTIONS (25)
  - Autoimmune thyroiditis [Unknown]
  - Pneumonia [Unknown]
  - Cardiomegaly [Unknown]
  - Vitamin D deficiency [Unknown]
  - Vision blurred [Unknown]
  - Tachycardia [Unknown]
  - Diabetes mellitus [Unknown]
  - Coronary artery disease [Unknown]
  - Obesity [Unknown]
  - Atelectasis [Unknown]
  - Hypertension [Unknown]
  - Arteriosclerosis [Unknown]
  - Dyspnoea [Unknown]
  - Mitral valve incompetence [Unknown]
  - Pulmonary valve incompetence [Unknown]
  - Myocardial infarction [Unknown]
  - Chest pain [Unknown]
  - Hyperlipidaemia [Unknown]
  - Anaemia [Unknown]
  - Tricuspid valve incompetence [Unknown]
  - Maculopathy [Unknown]
  - Haemorrhoids [Unknown]
  - Upper respiratory tract infection [Unknown]
  - Pleural effusion [Unknown]
  - Hyperparathyroidism [Unknown]

NARRATIVE: CASE EVENT DATE: 20161104
